FAERS Safety Report 4556727-4 (Version None)
Quarter: 2005Q1

REPORT INFORMATION
  Report Type: 
  Country: None (occurrence: None)
  Receive Date: 20050114
  Receipt Date: 20040507
  Transmission Date: 20050727
  Serious: Yes (Death, Hospitalization)
  Sender: FDA-Public Use
  Company Number: 197782

PATIENT
  Age: 47 Year
  Sex: Female
  Weight: 86.1834 kg

DRUGS (4)
  1. AVONEX [Suspect]
     Indication: MULTIPLE SCLEROSIS
     Dosage: 30 UG; QW; IM
     Route: 030
     Dates: start: 20020101, end: 20020101
  2. NEURONTIN [Concomitant]
  3. BACLOFEN [Concomitant]
  4. CELEXA [Concomitant]

REACTIONS (4)
  - ACUTE RESPIRATORY DISTRESS SYNDROME [None]
  - CONDITION AGGRAVATED [None]
  - MULTIPLE SCLEROSIS [None]
  - PNEUMONIA [None]
